FAERS Safety Report 14833111 (Version 1)
Quarter: 2018Q2

REPORT INFORMATION
  Report Type: Spontaneous
  Country: CN (occurrence: CN)
  Receive Date: 20180501
  Receipt Date: 20180501
  Transmission Date: 20180711
  Serious: Yes (Hospitalization)
  Sender: FDA-Public Use
  Company Number: CN-BAYER-2018-082233

PATIENT
  Age: 20 Year
  Sex: Female
  Weight: 55 kg

DRUGS (1)
  1. YASMIN [Suspect]
     Active Substance: DROSPIRENONE\ETHINYL ESTRADIOL
     Indication: METRORRHAGIA
     Dosage: 1 DF, QD
     Route: 048
     Dates: start: 20171225, end: 20180308

REACTIONS (2)
  - Deep vein thrombosis [None]
  - Anaemia [None]

NARRATIVE: CASE EVENT DATE: 20180301
